FAERS Safety Report 17214764 (Version 1)
Quarter: 2019Q4

REPORT INFORMATION
  Report Type: Spontaneous
  Country: ES (occurrence: ES)
  Receive Date: 20191230
  Receipt Date: 20191230
  Transmission Date: 20200122
  Serious: Yes (Life-Threatening, Other)
  Sender: FDA-Public Use
  Company Number: ES-MYLANLABS-2019M1128420

PATIENT
  Age: 71 Year

DRUGS (4)
  1. MIDAZOLAM [Suspect]
     Active Substance: MIDAZOLAM HYDROCHLORIDE
     Indication: INTERVERTEBRAL DISC OPERATION
     Dosage: UNK
     Route: 065
  2. HALOTHANE. [Suspect]
     Active Substance: HALOTHANE
     Indication: INTERVERTEBRAL DISC OPERATION
     Dosage: UNK
     Route: 065
  3. FENTANYL. [Suspect]
     Active Substance: FENTANYL
     Indication: INTERVERTEBRAL DISC OPERATION
     Dosage: UNK
     Route: 065
  4. SUCCINYLCHOLINE CHLORIDE. [Suspect]
     Active Substance: SUCCINYLCHOLINE CHLORIDE
     Indication: INTERVERTEBRAL DISC OPERATION
     Dosage: UNK
     Route: 065

REACTIONS (5)
  - Musculoskeletal stiffness [Unknown]
  - Tachycardia [Unknown]
  - Pyrexia [Unknown]
  - Cardiac arrest [Recovered/Resolved]
  - Hyperthermia malignant [Unknown]
